FAERS Safety Report 8806121 (Version 1)
Quarter: 2012Q4

REPORT INFORMATION
  Report Type: Spontaneous
  Country: ES (occurrence: None)
  Receive Date: 20120918
  Receipt Date: 20120918
  Transmission Date: 20130627
  Serious: Yes (Hospitalization)
  Sender: FDA-Public Use
  Company Number: DSA_59534_2012

PATIENT
  Age: 15 Year
  Sex: Male
  Weight: 66 kg

DRUGS (8)
  1. ACYCLOVIR [Suspect]
     Indication: ORAL DISORDER
     Dosage: (1 g/8h lesion), (15mg/kg/8h), one hour infusion Intravenous (not otherwise specified)
  2. VANCOMYCIN [Suspect]
     Dosage: (DF), (500 mg/6h)
  3. VANCOMYCIN [Suspect]
     Dosage: (DF), (500 mg/6h)
  4. CEFTAZIDIME [Concomitant]
  5. DOXORUBICIN [Concomitant]
  6. IFOSFAMIDE [Concomitant]
  7. CISPLATIN [Concomitant]
  8. METHOTEXATE [Concomitant]

REACTIONS (5)
  - Renal failure acute [None]
  - Pancytopenia [None]
  - Febrile neutropenia [None]
  - Mucosal inflammation [None]
  - Nephropathy toxic [None]
